FAERS Safety Report 4538236-1 (Version None)
Quarter: 2004Q4

REPORT INFORMATION
  Report Type: 
  Country: None (occurrence: None)
  Receive Date: 20041227
  Receipt Date: 20041215
  Transmission Date: 20050328
  Serious: Yes (Hospitalization)
  Sender: FDA-Public Use
  Company Number: US-JNJFOC-20041105330

PATIENT
  Sex: Female

DRUGS (17)
  1. INFLIXIMAB [Suspect]
     Indication: RHEUMATOID ARTHRITIS
     Route: 042
  2. COUMADIN [Concomitant]
  3. COQ [Concomitant]
     Dosage: 10 50MG DAILY
  4. FOLIC ACID [Concomitant]
  5. FOSAMAX [Concomitant]
  6. FUROSEMIDE [Concomitant]
  7. GLYBURIDE [Concomitant]
  8. HUMALOG [Concomitant]
  9. METHOTREXATE [Concomitant]
  10. METOPROLOL [Concomitant]
  11. MECLIZINE [Concomitant]
  12. SLO FE [Concomitant]
  13. TRICOR [Concomitant]
  14. ZETIA [Concomitant]
  15. METFORMIN HCL [Concomitant]
  16. FAMOTIDINE [Concomitant]
  17. VITAMIN C [Concomitant]

REACTIONS (4)
  - CATHETER SEPSIS [None]
  - INTRACARDIAC THROMBUS [None]
  - PNEUMONIA [None]
  - STAPHYLOCOCCAL SEPSIS [None]
